FAERS Safety Report 23757680 (Version 2)
Quarter: 2024Q2

REPORT INFORMATION
  Report Type: Spontaneous
  Country: AR (occurrence: AR)
  Receive Date: 20240418
  Receipt Date: 20240604
  Transmission Date: 20240716
  Serious: Yes (Death, Hospitalization, Other)
  Sender: FDA-Public Use
  Company Number: AR-MERCK SHARP + DOHME LLC-2404ARG008378

PATIENT
  Age: 8 Year
  Sex: Female
  Weight: 17 kg

DRUGS (3)
  1. LETERMOVIR [Suspect]
     Active Substance: LETERMOVIR
     Indication: Cytomegalovirus infection
     Dosage: 120 MILLIGRAM, QD
     Route: 048
  2. LETERMOVIR [Suspect]
     Active Substance: LETERMOVIR
     Indication: Prophylaxis
  3. FOSCARNET [Suspect]
     Active Substance: FOSCARNET
     Indication: Cytomegalovirus infection
     Dosage: UNK

REACTIONS (4)
  - Graft versus host disease [Fatal]
  - Ill-defined disorder [Unknown]
  - Product prescribing issue [Unknown]
  - Product use in unapproved indication [Unknown]
